FAERS Safety Report 12820977 (Version 2)
Quarter: 2016Q4

REPORT INFORMATION
  Report Type: Spontaneous
  Country: US (occurrence: US)
  Receive Date: 20161006
  Receipt Date: 20161013
  Transmission Date: 20170207
  Serious: No
  Sender: FDA-Public Use
  Company Number: US-CELGENEUS-USA-2016100092

PATIENT
  Age: 77 Year
  Sex: Female

DRUGS (2)
  1. POMALYST [Suspect]
     Active Substance: POMALIDOMIDE
     Indication: MONOCLONAL GAMMOPATHY
     Route: 048
     Dates: start: 20131213
  2. POMALYST [Suspect]
     Active Substance: POMALIDOMIDE
     Route: 048
     Dates: start: 20160917

REACTIONS (3)
  - Pruritus [Unknown]
  - Urticaria [Unknown]
  - Swelling face [Unknown]

NARRATIVE: CASE EVENT DATE: 2016
